FAERS Safety Report 10067900 (Version 1)
Quarter: 2014Q2

REPORT INFORMATION
  Report Type: Spontaneous
  Country: US (occurrence: US)
  Receive Date: 20140409
  Receipt Date: 20140409
  Transmission Date: 20141212
  Serious: Yes (Other)
  Sender: FDA-Public Use
  Company Number: US-BAYER-2014-049054

PATIENT
  Age: 20 Year
  Sex: Female
  Weight: 54 kg

DRUGS (1)
  1. BAYER GENUINE ASPIRIN ORIGINAL STRENGTH [Suspect]
     Dosage: 20 DF, ONCE
     Route: 048
     Dates: start: 20140330, end: 20140330

REACTIONS (5)
  - Self injurious behaviour [None]
  - Intentional overdose [None]
  - Vomiting [None]
  - Respiratory rate increased [Not Recovered/Not Resolved]
  - Pallor [Not Recovered/Not Resolved]
